FAERS Safety Report 7784446-X (Version None)
Quarter: 2011Q3

REPORT INFORMATION
  Report Type: 
  Country: None (occurrence: None)
  Receive Date: 20110928
  Receipt Date: 20110919
  Transmission Date: 20111222
  Serious: Yes (Other)
  Sender: FDA-Public Use
  Company Number: BR-SANOFI-AVENTIS-2011SA061659

PATIENT
  Sex: Male
  Weight: 75 kg

DRUGS (8)
  1. WARFARIN SODIUM [Concomitant]
     Indication: ANTICOAGULANT THERAPY
     Route: 048
  2. CARVEDILOL [Concomitant]
     Route: 048
  3. LANTUS [Suspect]
     Indication: TYPE 2 DIABETES MELLITUS
     Route: 058
  4. GINKGO BILOBA [Concomitant]
     Indication: LABYRINTHITIS
     Route: 048
  5. CARVEDILOL [Concomitant]
     Indication: ARRHYTHMIA
     Route: 048
  6. DIGOXIN [Concomitant]
     Indication: ARRHYTHMIA
     Route: 048
  7. INSULIN [Concomitant]
     Indication: TYPE 2 DIABETES MELLITUS
     Route: 058
  8. HUMALOG [Concomitant]

REACTIONS (6)
  - CEREBROVASCULAR ACCIDENT [None]
  - LEG AMPUTATION [None]
  - FALL [None]
  - LABYRINTHITIS [None]
  - BALANCE DISORDER [None]
  - FEMUR FRACTURE [None]
